FAERS Safety Report 7293287-1 (Version None)
Quarter: 2011Q1

REPORT INFORMATION
  Report Type: 
  Country: None (occurrence: None)
  Receive Date: 20110210
  Receipt Date: 20110210
  Transmission Date: 20110831
  Serious: Yes (Death)
  Sender: FDA-Public Use
  Company Number: None

PATIENT
  Age: 56 Year
  Sex: Male

DRUGS (8)
  1. ASPIRIN [Concomitant]
  2. TRIAMTERENE HCL [Concomitant]
  3. DILTIAZEM [Concomitant]
  4. EMTRICITABINE (EMTRIVA) [Suspect]
     Indication: HIV INFECTION
     Dosage: 200 MG QD PO
     Route: 048
     Dates: start: 20050616, end: 20100518
  5. TENOFOVIR DISOPROXIL FUMARATE (VIREAD) [Suspect]
     Indication: HIV INFECTION
     Dosage: 300 MG QD PO
     Route: 048
     Dates: start: 20051202, end: 20100518
  6. SUSTIVA [Suspect]
     Indication: HIV INFECTION
     Dosage: 600 MG QD PO
     Route: 048
     Dates: start: 20051202, end: 20100518
  7. GEMFIBROZIL [Concomitant]
  8. SIMVASTATIN [Concomitant]

REACTIONS (3)
  - DIABETIC KETOACIDOSIS [None]
  - ARRHYTHMIA [None]
  - PANCREATITIS [None]
